FAERS Safety Report 4855668-2 (Version None)
Quarter: 2005Q4

REPORT INFORMATION
  Report Type: 
  Country: None (occurrence: None)
  Receive Date: 20051216
  Receipt Date: 20051208
  Transmission Date: 20060501
  Serious: Yes (Congenital Anomaly, Other)
  Sender: FDA-Public Use
  Company Number: US-ABBOTT-05P-163-0319068-00

PATIENT
  Sex: Male
  Weight: 3.405 kg

DRUGS (2)
  1. DEPAKOTE [Suspect]
     Indication: DRUG EXPOSURE DURING PREGNANCY
  2. DEPAKOTE [Suspect]
     Dates: start: 20040407

REACTIONS (2)
  - CRYPTORCHISM [None]
  - INGUINAL HERNIA [None]
